FAERS Safety Report 21773090 (Version 2)
Quarter: 2023Q1

REPORT INFORMATION
  Report Type: Spontaneous
  Country: US (occurrence: US)
  Receive Date: 20221223
  Receipt Date: 20230213
  Transmission Date: 20230417
  Serious: No
  Sender: FDA-Public Use
  Company Number: US-ABBVIE-4248070

PATIENT

DRUGS (1)
  1. LUPRON DEPOT [Suspect]
     Active Substance: LEUPROLIDE ACETATE
     Indication: Product used for unknown indication
     Dosage: FORM STRENGTH: 3.75 MILLIGRAM?START DATE TEXT: UNKNOWN?STOP DATE TEXT: UNKNOWN
     Route: 030

REACTIONS (1)
  - Circumstance or information capable of leading to medication error [Unknown]
